FAERS Safety Report 6288844-5 (Version None)
Quarter: 2009Q3

REPORT INFORMATION
  Report Type: 
  Country: None (occurrence: None)
  Receive Date: 20090729
  Receipt Date: 20090723
  Transmission Date: 20100115
  Serious: Yes (Other)
  Sender: FDA-Public Use
  Company Number: BR-PFIZER INC-2009232873

PATIENT
  Age: 70 Year

DRUGS (2)
  1. VIAGRA [Suspect]
     Dosage: UNK
     Dates: start: 20060101
  2. SPIRIVA [Concomitant]
     Dosage: UNK

REACTIONS (3)
  - DRUG INEFFECTIVE [None]
  - INCORRECT DOSE ADMINISTERED [None]
  - SALMONELLOSIS [None]
